FAERS Safety Report 8675294 (Version 2)
Quarter: 2013Q2

REPORT INFORMATION
  Report Type: Spontaneous
  Country: DK (occurrence: DK)
  Receive Date: 20120720
  Receipt Date: 20130404
  Transmission Date: 20140414
  Serious: Yes (Other)
  Sender: FDA-Public Use
  Company Number: DK-PFIZER INC-2012170321

PATIENT
  Age: 8 Year
  Sex: Male
  Weight: 23.4 kg

DRUGS (1)
  1. GENOTROPIN [Suspect]
     Indication: GROWTH HORMONE DEFICIENCY
     Dosage: 0.3 MG, 1X/DAY
     Route: 058
     Dates: start: 20100129, end: 201203

REACTIONS (2)
  - Osteochondrosis [Not Recovered/Not Resolved]
  - Joint dislocation [Not Recovered/Not Resolved]
